FAERS Safety Report 11474655 (Version 1)
Quarter: 2015Q3

REPORT INFORMATION
  Report Type: Report from Study
  Country: FR (occurrence: FR)
  Receive Date: 20150908
  Receipt Date: 20150908
  Transmission Date: 20151125
  Serious: No
  Sender: FDA-Public Use
  Company Number: FR-JAZZ-2014-FR-015582

PATIENT
  Age: 20 Year
  Sex: Female
  Weight: 48 kg

DRUGS (9)
  1. XYREM [Suspect]
     Active Substance: SODIUM OXYBATE
     Dosage: 2.25 G, ONCE OR TWICE NIGHTLY
     Route: 048
     Dates: start: 20141115, end: 20141116
  2. XYREM [Suspect]
     Active Substance: SODIUM OXYBATE
     Dosage: 4.5 G, BID
     Route: 048
     Dates: start: 20141209
  3. MOTILIUM [Concomitant]
     Active Substance: DOMPERIDONE
     Indication: PRODUCT USED FOR UNKNOWN INDICATION
     Dosage: UNK
  4. XYREM [Suspect]
     Active Substance: SODIUM OXYBATE
     Dosage: 3 G, BID
     Route: 048
     Dates: start: 20141117, end: 20141208
  5. XYREM [Suspect]
     Active Substance: SODIUM OXYBATE
     Indication: NARCOLEPSY
     Dosage: 2.25 G, ONCE OR TWICE NIGHTLY
     Route: 048
     Dates: start: 20141107, end: 20141107
  6. XYREM [Suspect]
     Active Substance: SODIUM OXYBATE
     Indication: CATAPLEXY
     Dosage: 2.25 G, ONCE OR TWICE NIGHTLY
     Route: 048
     Dates: start: 20141109, end: 20141113
  7. MODIODAL [Concomitant]
     Active Substance: MODAFINIL
     Indication: NARCOLEPSY
     Dosage: TWO TABLETS, BID
  8. IBUPROFEN. [Concomitant]
     Active Substance: IBUPROFEN
     Indication: PRODUCT USED FOR UNKNOWN INDICATION
     Dosage: UNK
  9. MODIODAL [Concomitant]
     Active Substance: MODAFINIL
     Indication: CATAPLEXY

REACTIONS (7)
  - Headache [Unknown]
  - Insomnia [Unknown]
  - Tremor [Unknown]
  - Dyssomnia [Unknown]
  - Nausea [Unknown]
  - Vertigo [Unknown]
  - Drug dose omission [Unknown]

NARRATIVE: CASE EVENT DATE: 20141107
